FAERS Safety Report 6004200-9 (Version None)
Quarter: 2008Q4

REPORT INFORMATION
  Report Type: 
  Country: None (occurrence: None)
  Receive Date: 20081215
  Receipt Date: 20081215
  Transmission Date: 20090506
  Serious: No
  Sender: FDA-Public Use
  Company Number: None

PATIENT
  Age: 73 Year
  Sex: Male
  Weight: 113.3993 kg

DRUGS (1)
  1. AMLACTIN LOTION + CREAM 100% UPSHER-SMITH LABS, INC. [Suspect]
     Indication: DRY SKIN
     Dates: start: 20080710, end: 20081210

REACTIONS (1)
  - RASH [None]
